FAERS Safety Report 6872867-9 (Version None)
Quarter: 2010Q3

REPORT INFORMATION
  Report Type: 
  Country: None (occurrence: None)
  Receive Date: 20100723
  Receipt Date: 20081101
  Transmission Date: 20110219
  Serious: Yes (Other)
  Sender: FDA-Public Use
  Company Number: US-PFIZER INC-2008093228

PATIENT
  Sex: Female

DRUGS (4)
  1. CHANTIX [Suspect]
     Indication: SMOKING CESSATION THERAPY
     Route: 048
     Dates: start: 20080601, end: 20080901
  2. OXYCONTIN [Concomitant]
  3. ALL OTHER THERAPEUTIC PRODUCTS [Concomitant]
  4. VALIUM [Concomitant]

REACTIONS (4)
  - DECREASED APPETITE [None]
  - DEPRESSION [None]
  - DRUG INEFFECTIVE [None]
  - SUICIDE ATTEMPT [None]
